FAERS Safety Report 10453152 (Version 1)
Quarter: 2014Q3

REPORT INFORMATION
  Report Type: Spontaneous
  Country: GB (occurrence: GB)
  Receive Date: 20140915
  Receipt Date: 20140915
  Transmission Date: 20150326
  Serious: Yes (Hospitalization, Other)
  Sender: FDA-Public Use
  Company Number: GB-TEVA-507483ISR

PATIENT
  Age: 56 Year
  Sex: Male

DRUGS (1)
  1. OLANZAPINE. [Suspect]
     Active Substance: OLANZAPINE

REACTIONS (7)
  - Confusional state [Unknown]
  - Post procedural complication [Unknown]
  - Sedation [Unknown]
  - Incoherent [Unknown]
  - Tachycardia [Unknown]
  - Disorientation [Unknown]
  - Balance disorder [Unknown]

NARRATIVE: CASE EVENT DATE: 20131203
